FAERS Safety Report 8415147-2 (Version None)
Quarter: 2012Q2

REPORT INFORMATION
  Report Type: 
  Country: None (occurrence: None)
  Receive Date: 20120606
  Receipt Date: 20120601
  Transmission Date: 20120825
  Serious: Yes (Hospitalization)
  Sender: FDA-Public Use
  Company Number: US-PFIZER INC-2012132647

PATIENT
  Sex: Male
  Weight: 70 kg

DRUGS (13)
  1. PANTOPRAZOLE [Concomitant]
     Dosage: UNK
  2. LEVOFLOXACIN [Concomitant]
     Dosage: UNK
  3. HYDROXYUREA [Concomitant]
     Dosage: UNK
  4. MULTI-VITAMINS [Concomitant]
     Dosage: UNK
  5. ALLOPURINOL [Concomitant]
     Dosage: UNK
  6. NYSTATIN [Concomitant]
     Dosage: UNK
  7. ACYCLOVIR [Concomitant]
     Dosage: UNK
  8. NORVASC [Concomitant]
     Dosage: UNK
  9. MEPRON [Concomitant]
     Dosage: UNK
  10. MAGNESIUM SULFATE [Concomitant]
     Dosage: UNK
  11. TACROLIMUS [Concomitant]
     Dosage: UNK
  12. VFEND [Suspect]
     Indication: BONE MARROW TRANSPLANT
     Dosage: 200 MG, 2X/DAY
     Route: 048
     Dates: start: 20120301
  13. SORAFENIB [Concomitant]
     Dosage: UNK

REACTIONS (1)
  - PYREXIA [None]
